FAERS Safety Report 25859493 (Version 1)
Quarter: 2025Q3

REPORT INFORMATION
  Report Type: Spontaneous
  Country: US (occurrence: None)
  Receive Date: 20250926
  Receipt Date: 20250926
  Transmission Date: 20251021
  Serious: No
  Sender: FDA-CTU
  Company Number: None

PATIENT
  Age: 3 Year
  Sex: Male

DRUGS (4)
  1. VIGABATRIN [Suspect]
     Active Substance: VIGABATRIN
     Indication: Epilepsy
  2. CLOBAZAM [Concomitant]
     Active Substance: CLOBAZAM
  3. EPIDIOLEX [Concomitant]
     Active Substance: CANNABIDIOL
  4. LACOSAMIDE [Concomitant]
     Active Substance: LACOSAMIDE

REACTIONS (1)
  - Noninfective encephalitis [None]

NARRATIVE: CASE EVENT DATE: 20250926
